FAERS Safety Report 6333737-8 (Version None)
Quarter: 2009Q3

REPORT INFORMATION
  Report Type: 
  Country: None (occurrence: None)
  Receive Date: 20090829
  Receipt Date: 20090526
  Transmission Date: 20100115
  Serious: No
  Sender: FDA-Public Use
  Company Number: US-ABBOTT-09P-163-0576267-00

PATIENT
  Sex: Male
  Weight: 77.18 kg

DRUGS (5)
  1. SIMCOR [Suspect]
     Indication: BLOOD CHOLESTEROL INCREASED
     Route: 048
     Dates: start: 20090401, end: 20090501
  2. SIMCOR [Suspect]
     Route: 048
     Dates: start: 20090501
  3. CARVEDILOL [Concomitant]
     Indication: CARDIAC DISORDER
     Dosage: 3/125 BID
     Route: 048
  4. DIGOXIN [Concomitant]
     Indication: CARDIAC DISORDER
     Route: 048
  5. LISINOPRIL [Concomitant]
     Indication: CARDIAC DISORDER
     Route: 048

REACTIONS (1)
  - DIARRHOEA [None]
